FAERS Safety Report 11950564 (Version 1)
Quarter: 2016Q1

REPORT INFORMATION
  Report Type: Report from Study
  Country: US (occurrence: US)
  Receive Date: 20160125
  Receipt Date: 20160125
  Transmission Date: 20160526
  Serious: No
  Sender: FDA-Public Use
  Company Number: US-ABBVIE-15K-163-1331624-00

PATIENT
  Age: 62 Year
  Sex: Female

DRUGS (1)
  1. HUMIRA [Suspect]
     Active Substance: ADALIMUMAB
     Indication: PSORIATIC ARTHROPATHY
     Route: 065
     Dates: start: 201409

REACTIONS (6)
  - Urticaria [Recovered/Resolved]
  - Rash pruritic [Recovered/Resolved]
  - Rash pruritic [Recovering/Resolving]
  - Urticaria [Recovering/Resolving]
  - Urticaria [Recovered/Resolved]
  - Rash pruritic [Recovered/Resolved]

NARRATIVE: CASE EVENT DATE: 20141126
